FAERS Safety Report 4466775-0 (Version None)
Quarter: 2004Q3

REPORT INFORMATION
  Report Type: 
  Country: None (occurrence: None)
  Receive Date: 20040930
  Receipt Date: 20040917
  Transmission Date: 20050211
  Serious: Yes (Other)
  Sender: FDA-Public Use
  Company Number: 2004051947

PATIENT
  Sex: Male

DRUGS (5)
  1. LIPITOR [Suspect]
     Indication: BLOOD CHOLESTEROL
     Dosage: 10 MG (10 MG, 1 IN 1 D), ORAL
     Route: 048
     Dates: start: 19940101
  2. WARFARIN (WARFARIN) [Concomitant]
  3. ENALAPRIL MALEATE [Concomitant]
  4. PROPRANOLOL [Concomitant]
  5. METOPROLOL TARTRATE [Concomitant]

REACTIONS (8)
  - ARTHRITIS [None]
  - BACK PAIN [None]
  - CARDIAC PACEMAKER INSERTION [None]
  - INTERVERTEBRAL DISC DISORDER [None]
  - MITRAL VALVE REPLACEMENT [None]
  - MUSCLE CRAMP [None]
  - PAIN IN EXTREMITY [None]
  - POSTOPERATIVE THROMBOSIS [None]
